FAERS Safety Report 9499754 (Version 1)
Quarter: 2013Q1

REPORT INFORMATION
  Report Type: Spontaneous
  Country: US (occurrence: None)
  Receive Date: 20130107
  Receipt Date: 20130107
  Transmission Date: 20140127
  Serious: No
  Sender: FDA-Public Use
  Company Number: PHEH2012US020904

PATIENT
  Age: 26 Year
  Sex: Female
  Weight: 57.6 kg

DRUGS (1)
  1. GILENYA (FINGOLIMOD) CAPSULE, 0.5MG [Suspect]
     Indication: MULTIPLE SCLEROSIS
     Route: 048
     Dates: start: 20121012

REACTIONS (4)
  - Bronchitis [None]
  - Mouth ulceration [None]
  - White blood cell count decreased [None]
  - Oropharyngeal pain [None]
